FAERS Safety Report 5194119-8 (Version None)
Quarter: 2006Q4

REPORT INFORMATION
  Report Type: 
  Country: None (occurrence: None)
  Receive Date: 20061226
  Receipt Date: 20061215
  Transmission Date: 20070319
  Serious: Yes (Death, Hospitalization)
  Sender: FDA-Public Use
  Company Number: PHO-2006-050

PATIENT
  Age: 39 Year
  Sex: Male

DRUGS (1)
  1. PHOTOFRIN [Suspect]
     Indication: METASTASES TO PERITONEUM
     Dosage: 2.5MG/KG IV
     Route: 042
     Dates: start: 20060905, end: 20060905

REACTIONS (5)
  - HYPOALBUMINAEMIA [None]
  - HYPOCALCAEMIA [None]
  - INTESTINAL OBSTRUCTION [None]
  - PLEURAL EFFUSION [None]
  - SEPSIS [None]
